FAERS Safety Report 17284493 (Version 2)
Quarter: 2020Q1

REPORT INFORMATION
  Report Type: Spontaneous
  Country: US (occurrence: US)
  Receive Date: 20200117
  Receipt Date: 20200228
  Transmission Date: 20200409
  Serious: No
  Sender: FDA-Public Use
  Company Number: US-ASTRAZENECA-2019SF88355

PATIENT
  Age: 44 Year
  Sex: Female
  Weight: 86.2 kg

DRUGS (14)
  1. BYDUREON BCISE [Suspect]
     Active Substance: EXENATIDE
     Indication: TYPE 2 DIABETES MELLITUS
     Route: 058
     Dates: start: 2018
  2. CRESTOR [Suspect]
     Active Substance: ROSUVASTATIN CALCIUM
     Indication: BLOOD CHOLESTEROL INCREASED
     Route: 048
     Dates: start: 2014
  3. AMITIZA [Concomitant]
     Active Substance: LUBIPROSTONE
     Indication: INTESTINAL DILATATION
     Route: 048
     Dates: start: 201812
  4. METFORMIN [Concomitant]
     Active Substance: METFORMIN HYDROCHLORIDE
     Indication: TYPE 2 DIABETES MELLITUS
     Route: 048
     Dates: start: 2006
  5. INVOKANA [Concomitant]
     Active Substance: CANAGLIFLOZIN
     Indication: TYPE 2 DIABETES MELLITUS
     Route: 048
     Dates: start: 2015
  6. TUJEO [Concomitant]
     Indication: TYPE 2 DIABETES MELLITUS
     Dosage: 70 UNITS IN THE MORNING
     Route: 058
     Dates: start: 2018
  7. GABAPENTIN. [Concomitant]
     Active Substance: GABAPENTIN
     Indication: RESTLESS LEGS SYNDROME
     Route: 048
     Dates: start: 2016
  8. BYDUREON [Suspect]
     Active Substance: EXENATIDE
     Indication: TYPE 2 DIABETES MELLITUS
     Dosage: ONCE A WEEK
     Route: 058
     Dates: start: 2016, end: 2018
  9. ASPIRIN. [Concomitant]
     Active Substance: ASPIRIN
     Indication: PROPHYLAXIS
     Route: 048
     Dates: start: 2015
  10. HUMALOG [Concomitant]
     Active Substance: INSULIN LISPRO
     Indication: TYPE 2 DIABETES MELLITUS
     Dosage: 12 UNITS FOR BREAKFAST AND LUNCH, FOR DINNER 14-15 UNITS DAILY
     Route: 058
     Dates: start: 2016
  11. HYZAR [Concomitant]
     Indication: HYPERTENSION
     Route: 048
     Dates: start: 2015
  12. BENTYL [Concomitant]
     Active Substance: DICYCLOMINE HYDROCHLORIDE
     Indication: IRRITABLE BOWEL SYNDROME
     Route: 048
     Dates: start: 2012
  13. AMITIZA [Concomitant]
     Active Substance: LUBIPROSTONE
     Indication: INTESTINAL DILATATION
     Route: 048
     Dates: start: 2019
  14. CYMBALTA [Concomitant]
     Active Substance: DULOXETINE HYDROCHLORIDE
     Indication: DEPRESSION
     Route: 048
     Dates: start: 2012

REACTIONS (9)
  - Injection site mass [Recovered/Resolved]
  - Intestinal dilatation [Unknown]
  - Incorrect dose administered [Unknown]
  - Restless legs syndrome [Unknown]
  - Product administered at inappropriate site [Unknown]
  - Device leakage [Unknown]
  - Injection site pain [Recovered/Resolved]
  - Injection site bruising [Recovered/Resolved]
  - Wrong technique in product usage process [Unknown]

NARRATIVE: CASE EVENT DATE: 2016
